FAERS Safety Report 22389043 (Version 1)
Quarter: 2023Q2

REPORT INFORMATION
  Report Type: Other
  Country: US (occurrence: US)
  Receive Date: 20230531
  Receipt Date: 20230531
  Transmission Date: 20230721
  Serious: Yes (Other)
  Sender: FDA-Public Use
  Company Number: US-UROVANT SCIENCES GMBH-202305-URV-000923

PATIENT
  Sex: Female

DRUGS (1)
  1. GEMTESA [Suspect]
     Active Substance: VIBEGRON
     Indication: Hypertonic bladder
     Dosage: 75 MG, QD
     Route: 048
     Dates: start: 202302, end: 202305

REACTIONS (4)
  - Pulmonary congestion [Not Recovered/Not Resolved]
  - Rhinorrhoea [Recovered/Resolved]
  - Chest discomfort [Unknown]
  - Cough [Unknown]
